FAERS Safety Report 23471448 (Version 1)
Quarter: 2024Q1

REPORT INFORMATION
  Report Type: Spontaneous
  Country: US (occurrence: US)
  Receive Date: 20240202
  Receipt Date: 20240202
  Transmission Date: 20240410
  Serious: No
  Sender: FDA-Public Use
  Company Number: US-SA-SAC20240122000466

PATIENT
  Age: 32 Year
  Sex: Female
  Weight: 70 kg

DRUGS (8)
  1. DUPIXENT [Suspect]
     Active Substance: DUPILUMAB
     Indication: Dermatitis atopic
     Dosage: 300 MG, QOW
     Route: 058
  2. LEVOCABASTINE HYDROCHLORIDE [Concomitant]
     Active Substance: LEVOCABASTINE HYDROCHLORIDE
  3. KYLEENA [Concomitant]
     Active Substance: LEVONORGESTREL
  4. IBUPROFEN [Concomitant]
     Active Substance: IBUPROFEN
  5. ADVIL [Concomitant]
     Active Substance: IBUPROFEN
  6. COLLAGEN [Concomitant]
     Active Substance: COLLAGEN
  7. TYLENOL [Concomitant]
     Active Substance: ACETAMINOPHEN
  8. VITAMINS NOS [Concomitant]
     Active Substance: VITAMINS

REACTIONS (3)
  - Skin erosion [Unknown]
  - Pain of skin [Unknown]
  - Dermatitis atopic [Unknown]

NARRATIVE: CASE EVENT DATE: 20231201
